FAERS Safety Report 21397150 (Version 1)
Quarter: 2022Q3

REPORT INFORMATION
  Report Type: Spontaneous
  Country: US (occurrence: US)
  Receive Date: 20220930
  Receipt Date: 20220930
  Transmission Date: 20221027
  Serious: Yes (Other)
  Sender: FDA-Public Use
  Company Number: US-PFIZER INC-PV202200072872

PATIENT
  Age: 73 Year
  Sex: Female

DRUGS (1)
  1. LORBRENA [Suspect]
     Active Substance: LORLATINIB
     Indication: Non-small cell lung cancer stage IV
     Dosage: 100 MG
     Dates: start: 202101

REACTIONS (10)
  - Carpal tunnel syndrome [Not Recovered/Not Resolved]
  - Neoplasm recurrence [Unknown]
  - Balance disorder [Not Recovered/Not Resolved]
  - Gait disturbance [Not Recovered/Not Resolved]
  - Speech disorder [Unknown]
  - Affective disorder [Unknown]
  - Depression [Unknown]
  - Hypoaesthesia [Not Recovered/Not Resolved]
  - Sensory loss [Not Recovered/Not Resolved]
  - Intervertebral disc degeneration [Unknown]

NARRATIVE: CASE EVENT DATE: 20210101
